FAERS Safety Report 13109404 (Version 2)
Quarter: 2017Q2

REPORT INFORMATION
  Report Type: Report from Study
  Country: US (occurrence: US)
  Receive Date: 20170112
  Receipt Date: 20170601
  Transmission Date: 20170830
  Serious: Yes (Other)
  Sender: FDA-Public Use
  Company Number: US-009507513-1701USA003553

PATIENT
  Sex: Female

DRUGS (3)
  1. OPDIVO [Suspect]
     Active Substance: NIVOLUMAB
  2. KEYTRUDA [Suspect]
     Active Substance: PEMBROLIZUMAB
     Dosage: UNK
     Dates: start: 2014, end: 2016
  3. YERVOY [Concomitant]
     Active Substance: IPILIMUMAB
     Dosage: UNK

REACTIONS (2)
  - Malignant neoplasm progression [Unknown]
  - Lung disorder [Unknown]
